FAERS Safety Report 17977246 (Version 2)
Quarter: 2020Q3

REPORT INFORMATION
  Report Type: Spontaneous
  Country: US (occurrence: US)
  Receive Date: 20200702
  Receipt Date: 20200827
  Transmission Date: 20201103
  Serious: Yes (Other)
  Sender: FDA-Public Use
  Company Number: US-BAUSCH-BL-2020-018122

PATIENT
  Age: 80 Year
  Sex: Female

DRUGS (3)
  1. PREDNISOLONE ACETATE. [Suspect]
     Active Substance: PREDNISOLONE ACETATE
     Indication: CYSTOID MACULAR OEDEMA
     Dosage: IN BOTH EYES
     Route: 061
  2. PREDNISOLONE ACETATE. [Suspect]
     Active Substance: PREDNISOLONE ACETATE
     Dosage: RESTARTED AT 6TH WEEK AFTER RECOVERY FROM ICK
     Route: 065
  3. NEPAFENAC [Suspect]
     Active Substance: NEPAFENAC
     Indication: CYSTOID MACULAR OEDEMA
     Dosage: IN BOTH EYES
     Route: 061

REACTIONS (1)
  - Infectious crystalline keratopathy [Recovered/Resolved]
